FAERS Safety Report 12155221 (Version 1)
Quarter: 2016Q1

REPORT INFORMATION
  Report Type: Spontaneous
  Country: FR (occurrence: FR)
  Receive Date: 20160307
  Receipt Date: 20160307
  Transmission Date: 20160526
  Serious: Yes (Other)
  Sender: FDA-Public Use
  Company Number: FR-PFIZER INC-2016128996

PATIENT
  Age: 35 Year
  Sex: Female

DRUGS (6)
  1. ZYVOXID [Suspect]
     Active Substance: LINEZOLID
     Indication: BACTERIAL INFECTION
     Dosage: 600 MG, 2X/DAY
     Route: 048
     Dates: start: 20150922, end: 20151117
  2. EPITOMAX [Concomitant]
     Active Substance: TOPIRAMATE
     Dosage: UNK
  3. ZOLPIDEM [Concomitant]
     Active Substance: ZOLPIDEM\ZOLPIDEM TARTRATE
  4. DALACINE [Suspect]
     Active Substance: CLINDAMYCIN HYDROCHLORIDE
     Indication: BACTERIAL INFECTION
     Dosage: 1200 MG, DAILY
     Route: 048
     Dates: start: 20150922
  5. LEVOTHYROX [Concomitant]
     Active Substance: LEVOTHYROXINE
  6. DESOGESTREL [Concomitant]
     Active Substance: DESOGESTREL

REACTIONS (2)
  - Optic neuropathy [Not Recovered/Not Resolved]
  - Optic atrophy [Not Recovered/Not Resolved]

NARRATIVE: CASE EVENT DATE: 20151117
